FAERS Safety Report 4749121-4 (Version None)
Quarter: 2005Q3

REPORT INFORMATION
  Report Type: 
  Country: None (occurrence: None)
  Receive Date: 20050819
  Receipt Date: 20041115
  Transmission Date: 20060218
  Serious: Yes (Congenital Anomaly)
  Sender: FDA-Public Use
  Company Number: US-ROCHE-386477

PATIENT
  Sex: Female
  Weight: 3 kg

DRUGS (1)
  1. ACCUTANE [Suspect]
     Indication: ACNE
     Dates: start: 20041001, end: 20041111

REACTIONS (4)
  - ACROCHORDON [None]
  - CONGENITAL MUSCLE ABSENCE [None]
  - DRUG EXPOSURE DURING PREGNANCY [None]
  - EAR DEFORMITY ACQUIRED [None]
